FAERS Safety Report 6544362-8 (Version None)
Quarter: 2010Q1

REPORT INFORMATION
  Report Type: 
  Country: None (occurrence: None)
  Receive Date: 20100120
  Receipt Date: 20100120
  Transmission Date: 20100710
  Serious: Yes (Hospitalization)
  Sender: FDA-Public Use
  Company Number: None

PATIENT
  Age: 67 Year
  Sex: Male

DRUGS (1)
  1. STERILE WATER [Suspect]
     Indication: WOUND TREATMENT
     Dates: start: 20091201, end: 20091209

REACTIONS (2)
  - APPLICATION SITE PAIN [None]
  - PRODUCT ODOUR ABNORMAL [None]
